FAERS Safety Report 21651471 (Version 1)
Quarter: 2022Q4

REPORT INFORMATION
  Report Type: Report from Study
  Country: US (occurrence: US)
  Receive Date: 20221128
  Receipt Date: 20221128
  Transmission Date: 20230113
  Serious: No
  Sender: FDA-Public Use
  Company Number: US-ABBVIE-4161230

PATIENT
  Sex: Female

DRUGS (2)
  1. HUMIRA [Suspect]
     Active Substance: ADALIMUMAB
     Indication: Crohn^s disease
     Route: 058
  2. MODERNA COVID-19 VACCINE [Concomitant]
     Active Substance: ELASOMERAN
     Indication: COVID-19 immunisation
     Dosage: FREQUENCY 1 IN ONCE
     Route: 030

REACTIONS (9)
  - Dementia [Unknown]
  - Amnesia [Unknown]
  - Pain in extremity [Unknown]
  - Headache [Unknown]
  - Fall [Unknown]
  - Head injury [Unknown]
  - Device leakage [Unknown]
  - Weight decreased [Unknown]
  - Limb injury [Unknown]
